FAERS Safety Report 9120865 (Version 1)
Quarter: 2013Q1

REPORT INFORMATION
  Report Type: Report from Study
  Country: US (occurrence: US)
  Receive Date: 20130226
  Receipt Date: 20130226
  Transmission Date: 20140127
  Serious: Yes (Life-Threatening, Hospitalization)
  Sender: FDA-Public Use
  Company Number: US-GLAXOSMITHKLINE-A0944632C

PATIENT
  Age: 62 Year
  Sex: Female
  Weight: 81.2 kg

DRUGS (7)
  1. PLACEBO [Suspect]
     Indication: TYPE 2 DIABETES MELLITUS
     Route: 058
     Dates: start: 20091209, end: 20111207
  2. GLIMEPIRIDE [Suspect]
     Indication: TYPE 2 DIABETES MELLITUS
     Dosage: 4MG PER DAY
     Route: 048
     Dates: start: 20091028
  3. METFORMIN [Suspect]
     Indication: TYPE 2 DIABETES MELLITUS
     Dosage: 1000MG TWICE PER DAY
     Route: 048
  4. COREG [Suspect]
     Indication: HYPERTENSION
     Dosage: 12.5MG PER DAY
     Route: 048
     Dates: start: 20120312, end: 20121122
  5. HYDRALAZINE [Suspect]
     Indication: HYPERTENSION
     Dosage: 25MG THREE TIMES PER DAY
     Route: 048
     Dates: start: 20120222, end: 20121122
  6. LASIX [Suspect]
     Indication: HYPERTENSION
     Dosage: 40MG TWICE PER DAY
     Route: 048
     Dates: start: 20120315, end: 20121122
  7. ZOCOR [Concomitant]
     Dosage: 20MG TWICE PER DAY

REACTIONS (2)
  - Angioedema [Recovered/Resolved]
  - Cardiac arrest [Recovered/Resolved]
